FAERS Safety Report 18180953 (Version 1)
Quarter: 2020Q3

REPORT INFORMATION
  Report Type: Spontaneous
  Country: GB (occurrence: GB)
  Receive Date: 20200821
  Receipt Date: 20200821
  Transmission Date: 20201103
  Serious: Yes (Other)
  Sender: FDA-Public Use
  Company Number: GB-TEVA-2020-GB-1816132

PATIENT
  Age: 30 Year
  Sex: Female
  Weight: 64 kg

DRUGS (5)
  1. DULOXETINE. [Suspect]
     Active Substance: DULOXETINE
     Dosage: 20MG
     Dates: start: 20200519
  2. LAMOTRIGINE. [Concomitant]
     Active Substance: LAMOTRIGINE
     Dosage: 1 DOSAGE FORMS DAILY; AT NIGHT
     Dates: start: 20200302
  3. SOPROBEC [Concomitant]
     Dosage: 4 DOSAGE FORMS
     Route: 055
     Dates: start: 20200429
  4. DIAZEPAM. [Concomitant]
     Active Substance: DIAZEPAM
     Dosage: 2MG
     Dates: start: 20200207
  5. PRIADEL [Concomitant]
     Active Substance: LITHIUM
     Dosage: 600 MILLIGRAM DAILY; NIGHT
     Dates: start: 20200303

REACTIONS (3)
  - Coordination abnormal [Unknown]
  - Vomiting [Unknown]
  - Nausea [Unknown]

NARRATIVE: CASE EVENT DATE: 20200723
